FAERS Safety Report 12489523 (Version 1)
Quarter: 2016Q2

REPORT INFORMATION
  Report Type: Other
  Country: US (occurrence: US)
  Receive Date: 20160622
  Receipt Date: 20160622
  Transmission Date: 20160815
  Serious: Yes (Other)
  Sender: FDA-Public Use
  Company Number: US-PURDUE-DEU-2016-0018098

PATIENT
  Age: 43 Year
  Sex: Female

DRUGS (10)
  1. HYDROMORPHONE HCL (SIMILAR TO 19-892) [Suspect]
     Active Substance: HYDROMORPHONE HYDROCHLORIDE
     Dosage: 10 MG, DAILY
     Route: 037
  2. BUPIVACAINE. [Suspect]
     Active Substance: BUPIVACAINE
     Indication: BACK PAIN
     Dosage: 15.3 MG, DAILY
     Route: 037
  3. METHADONE [Suspect]
     Active Substance: METHADONE HYDROCHLORIDE
     Indication: BACK PAIN
  4. HYDROMORPHONE HCL (SIMILAR TO 19-892) [Suspect]
     Active Substance: HYDROMORPHONE HYDROCHLORIDE
     Indication: CHEST PAIN
     Dosage: 2 MG, DAILY
     Route: 037
  5. HYDROMORPHONE HCL (SIMILAR TO 19-892) [Suspect]
     Active Substance: HYDROMORPHONE HYDROCHLORIDE
     Indication: BACK PAIN
     Dosage: 23.028 MG, DAILY
     Route: 037
  6. METHADONE [Suspect]
     Active Substance: METHADONE HYDROCHLORIDE
     Indication: CHEST PAIN
     Route: 042
  7. OXYMORPHONE [Suspect]
     Active Substance: OXYMORPHONE
     Indication: CHEST PAIN
     Route: 051
  8. BUPIVACAINE. [Suspect]
     Active Substance: BUPIVACAINE
     Indication: CHEST PAIN
     Dosage: 1.3 MG, DAILY
     Route: 037
  9. OXYMORPHONE [Suspect]
     Active Substance: OXYMORPHONE
     Indication: BACK PAIN
  10. BUPIVACAINE. [Suspect]
     Active Substance: BUPIVACAINE
     Dosage: 8 MG, DAILY
     Route: 037

REACTIONS (3)
  - Hyperaesthesia [Recovered/Resolved]
  - Product use issue [Unknown]
  - Off label use [Unknown]
